FAERS Safety Report 9137942 (Version 1)
Quarter: 2013Q1

REPORT INFORMATION
  Report Type: Spontaneous
  Country: SE (occurrence: SE)
  Receive Date: 20130304
  Receipt Date: 20130304
  Transmission Date: 20140127
  Serious: Yes (Other)
  Sender: FDA-Public Use
  Company Number: SE-ELI_LILLY_AND_COMPANY-SE201301009990

PATIENT
  Age: 45 Year
  Sex: Male

DRUGS (1)
  1. HUMULIN NPH [Suspect]
     Indication: TYPE 1 DIABETES MELLITUS
     Dosage: UNK UNK, UNKNOWN
     Dates: start: 201301

REACTIONS (1)
  - Blood glucose increased [Unknown]
